FAERS Safety Report 7844784-9 (Version None)
Quarter: 2011Q4

REPORT INFORMATION
  Report Type: 
  Country: None (occurrence: None)
  Receive Date: 20111025
  Receipt Date: 20111024
  Transmission Date: 20120403
  Serious: Yes (Death, Hospitalization)
  Sender: FDA-Public Use
  Company Number: US-GLAXOSMITHKLINE-A0918365A

PATIENT
  Age: 60 Year
  Sex: Male

DRUGS (1)
  1. AVANDIA [Suspect]
     Indication: DIABETES MELLITUS
     Route: 048

REACTIONS (7)
  - BONE NEOPLASM MALIGNANT [None]
  - DEATH [None]
  - RENAL DISORDER [None]
  - MYOCARDIAL INFARCTION [None]
  - BLOOD PRESSURE ABNORMAL [None]
  - LUNG DISORDER [None]
  - CEREBROVASCULAR ACCIDENT [None]
